FAERS Safety Report 23851090 (Version 2)
Quarter: 2024Q3

REPORT INFORMATION
  Report Type: Spontaneous
  Country: US (occurrence: US)
  Receive Date: 20240514
  Receipt Date: 20240717
  Transmission Date: 20241017
  Serious: No
  Sender: BRISTOL MYERS SQUIBB
  Company Number: US-BRISTOL-MYERS SQUIBB COMPANY-2024-071225

PATIENT
  Age: 74 Year
  Sex: Female

DRUGS (4)
  1. ELIQUIS [Interacting]
     Active Substance: APIXABAN
     Indication: Product used for unknown indication
  2. OFEV [Interacting]
     Active Substance: NINTEDANIB
     Indication: Interstitial lung disease
     Route: 048
  3. FLUOXETINE [Interacting]
     Active Substance: FLUOXETINE HYDROCHLORIDE
     Indication: Product used for unknown indication
  4. MELOXICAM [Interacting]
     Active Substance: MELOXICAM
     Indication: Product used for unknown indication

REACTIONS (7)
  - Liver function test increased [Not Recovered/Not Resolved]
  - Herpes zoster [Unknown]
  - Eye pruritus [Unknown]
  - Diarrhoea [Recovering/Resolving]
  - Increased appetite [Not Recovered/Not Resolved]
  - Drug interaction [Unknown]
  - Memory impairment [Unknown]
